FAERS Safety Report 21030278 (Version 1)
Quarter: 2022Q3

REPORT INFORMATION
  Report Type: Spontaneous
  Country: US (occurrence: None)
  Receive Date: 20220701
  Receipt Date: 20220701
  Transmission Date: 20221027
  Serious: No
  Sender: FDA-Public Use
  Company Number: US-ROCHE-2964844

PATIENT
  Sex: Female

DRUGS (2)
  1. ACTEMRA [Suspect]
     Active Substance: TOCILIZUMAB
     Indication: Rheumatoid arthritis
     Dosage: EVERY OTHER WEEK
     Route: 058
     Dates: start: 202107
  2. ACTEMRA [Suspect]
     Active Substance: TOCILIZUMAB

REACTIONS (13)
  - Migraine [Not Recovered/Not Resolved]
  - Dyspepsia [Unknown]
  - Memory impairment [Unknown]
  - Anxiety [Unknown]
  - Depression [Unknown]
  - Insomnia [Unknown]
  - Fatigue [Unknown]
  - Decreased appetite [Unknown]
  - Aphasia [Unknown]
  - Disturbance in attention [Unknown]
  - Fall [Unknown]
  - Loss of personal independence in daily activities [Unknown]
  - Balance disorder [Unknown]
